FAERS Safety Report 8242129-6 (Version None)
Quarter: 2012Q1

REPORT INFORMATION
  Report Type: 
  Country: None (occurrence: None)
  Receive Date: 20120314
  Receipt Date: 20100513
  Transmission Date: 20120608
  Serious: No
  Sender: FDA-Public Use
  Company Number: PHHY2010US31775

PATIENT
  Age: 24 Year
  Sex: Male

DRUGS (1)
  1. FANAPT [Suspect]
     Indication: SCHIZOPHRENIA
     Dosage: STARTER PACK BID, 1,2,4,6 MG DOSE RANGE, ORAL
     Route: 048
     Dates: start: 20100427, end: 20100504

REACTIONS (2)
  - ALCOHOLISM [None]
  - ABNORMAL BEHAVIOUR [None]
